FAERS Safety Report 4866885-X (Version None)
Quarter: 2005Q4

REPORT INFORMATION
  Report Type: 
  Country: None (occurrence: None)
  Receive Date: 20051222
  Receipt Date: 20051207
  Transmission Date: 20060501
  Serious: Yes (Hospitalization)
  Sender: FDA-Public Use
  Company Number: CZ200512001510

PATIENT
  Age: 43 Year
  Sex: Male

DRUGS (4)
  1. ZYPREXA [Suspect]
     Dosage: 10 MG, DAILY (1/D), ORAL
     Route: 048
     Dates: start: 20040505
  2. VALPROATE SODIUM [Concomitant]
  3. MIANSERIN (MIANSERIN) [Concomitant]
  4. FLUVOXAMINE MALEATE [Concomitant]

REACTIONS (1)
  - THROMBOPHLEBITIS [None]
